FAERS Safety Report 20212371 (Version 1)
Quarter: 2021Q4

REPORT INFORMATION
  Report Type: Report from Study
  Country: FR (occurrence: None)
  Receive Date: 20211221
  Receipt Date: 20211221
  Transmission Date: 20220303
  Serious: Yes (Death, Life-Threatening, Hospitalization, Other)
  Sender: FDA-Public Use
  Company Number: FR-Merck Healthcare KGaA-9194734

PATIENT
  Age: 67 Year
  Sex: Female
  Weight: 72 kg

DRUGS (22)
  1. BISOPROLOL [Suspect]
     Active Substance: BISOPROLOL
     Indication: Hypertension
     Dosage: THERAPY END DATE:07-MAR-2019
     Route: 048
  2. METFORMIN [Suspect]
     Active Substance: METFORMIN HYDROCHLORIDE
     Indication: Insulin-requiring type 2 diabetes mellitus
     Route: 048
  3. METFORMIN [Suspect]
     Active Substance: METFORMIN HYDROCHLORIDE
     Dosage: THERAPY END DATE: 07-MAR-2019
     Route: 048
  4. ACARBOSE [Suspect]
     Active Substance: ACARBOSE
     Indication: Insulin-requiring type 2 diabetes mellitus
     Dosage: THERAPY END DATE: 07-MAR-2019
     Route: 048
  5. VOTRIENT [Suspect]
     Active Substance: PAZOPANIB HYDROCHLORIDE
     Indication: Renal cancer metastatic
     Dosage: THERAPY START DATE: 13-DEC-2018
     Route: 048
  6. VOTRIENT [Suspect]
     Active Substance: PAZOPANIB HYDROCHLORIDE
     Dosage: THERAPY START DATE:26-FEB-2019 ?THERAPY END DATE: 07-MAR-2019
     Route: 048
  7. VOTRIENT [Suspect]
     Active Substance: PAZOPANIB HYDROCHLORIDE
     Dosage: THERAPY START DATE:13-DEC-2019 ?THERAPY END DATE: 26-NOV-2019
     Route: 048
  8. VOTRIENT [Suspect]
     Active Substance: PAZOPANIB HYDROCHLORIDE
     Dosage: THERAPY START DATE: 08-JAN-2019?THERAPY END DATE: 26-NOV-2019
     Route: 048
  9. VOTRIENT [Suspect]
     Active Substance: PAZOPANIB HYDROCHLORIDE
     Dosage: THERAPY START DATE: 26-FEB-2019
     Route: 048
  10. VOTRIENT [Suspect]
     Active Substance: PAZOPANIB HYDROCHLORIDE
     Dosage: THERAPY START DATE:14-MAY-2019?THERAPY END DATE: 26-NOV-2019
     Route: 048
  11. VOTRIENT [Suspect]
     Active Substance: PAZOPANIB HYDROCHLORIDE
     Dosage: THERAPY START DATE:13-DEC-2018?THERAPY END DATE: 26-NOV-2019
     Route: 048
  12. VOTRIENT [Suspect]
     Active Substance: PAZOPANIB HYDROCHLORIDE
  13. VOTRIENT [Suspect]
     Active Substance: PAZOPANIB HYDROCHLORIDE
     Dosage: THERAPY START DATE: 13-DEC-2018
     Route: 048
  14. VOTRIENT [Suspect]
     Active Substance: PAZOPANIB HYDROCHLORIDE
     Dosage: THERAPY START DATE:26-FEB-2019?THERAPY END DATE: 07-MAR-2019
     Route: 048
  15. JANUVIA [Suspect]
     Active Substance: SITAGLIPTIN PHOSPHATE
     Indication: Insulin-requiring type 2 diabetes mellitus
     Dosage: THERAPY END DATE: 07-MAR-2019
     Route: 048
  16. EZETIMIBE\SIMVASTATIN [Suspect]
     Active Substance: EZETIMIBE\SIMVASTATIN
     Indication: Dyslipidaemia
     Dosage: 10/20 MG DAILY?THERAPY END DATE: 07-MAR-2019
     Route: 048
  17. INDAPAMIDE\PERINDOPRIL ERBUMINE [Suspect]
     Active Substance: INDAPAMIDE\PERINDOPRIL ERBUMINE
     Indication: Hypertension
     Dosage: THERAPY END DATE: 07-MAR-2019
  18. LANTUS [Suspect]
     Active Substance: INSULIN GLARGINE
     Indication: Insulin-requiring type 2 diabetes mellitus
     Dosage: THERAPY END DATE: 07-MAR-2019
     Route: 048
  19. RILMENIDINE [Suspect]
     Active Substance: RILMENIDINE
     Indication: Hypertension
     Route: 048
  20. RILMENIDINE [Suspect]
     Active Substance: RILMENIDINE
     Dosage: 1 UG/ LITER?THERAPY END DATE:07-MAR-2019
     Route: 048
  21. KARDEGIC [Concomitant]
     Active Substance: ASPIRIN DL-LYSINE
     Indication: Product used for unknown indication
  22. RILMENIDINE [Concomitant]
     Active Substance: RILMENIDINE
     Indication: Product used for unknown indication

REACTIONS (38)
  - Renal cancer metastatic [Fatal]
  - Metastases to central nervous system [Fatal]
  - Malignant neoplasm progression [Fatal]
  - Acute kidney injury [Recovered/Resolved with Sequelae]
  - Dehydration [Recovered/Resolved with Sequelae]
  - Staphylococcal sepsis [Unknown]
  - Peripheral artery haematoma [Unknown]
  - General physical health deterioration [Unknown]
  - Metabolic acidosis [Unknown]
  - Blood pressure systolic increased [Unknown]
  - Pneumonia [Recovering/Resolving]
  - Blood pressure systolic decreased [Unknown]
  - Shock [Recovered/Resolved]
  - Coma [Recovered/Resolved]
  - Hyperkalaemia [Recovered/Resolved]
  - Hypothyroidism [Recovering/Resolving]
  - Lactic acidosis [Recovering/Resolving]
  - Cell death [Recovered/Resolved]
  - Shock haemorrhagic [Recovered/Resolved]
  - Staphylococcal infection [Recovered/Resolved]
  - Hyperleukocytosis [Recovered/Resolved]
  - Malnutrition [Recovered/Resolved]
  - Haematoma [Unknown]
  - Vitamin D deficiency [Recovered/Resolved]
  - Urinary incontinence [Not Recovered/Not Resolved]
  - Intestinal transit time abnormal [Not Recovered/Not Resolved]
  - Anaemia [Recovered/Resolved]
  - Oedema peripheral [Recovered/Resolved]
  - Psychomotor retardation [Recovered/Resolved]
  - Decreased appetite [Unknown]
  - Chronic kidney disease [Unknown]
  - Pruritus [Recovered/Resolved]
  - Vomiting [Recovered/Resolved]
  - Constipation [Not Recovered/Not Resolved]
  - Heart rate decreased [Unknown]
  - Asthenia [Not Recovered/Not Resolved]
  - Diarrhoea [Recovered/Resolved]
  - Accidental overdose [Unknown]

NARRATIVE: CASE EVENT DATE: 20190108
